FAERS Safety Report 9510146 (Version 2)
Quarter: 2013Q3

REPORT INFORMATION
  Report Type: Spontaneous
  Country: US (occurrence: US)
  Receive Date: 20130909
  Receipt Date: 20130909
  Transmission Date: 20140515
  Serious: No
  Sender: FDA-Public Use
  Company Number: US-BRISTOL-MYERS SQUIBB COMPANY-18741678

PATIENT
  Age: 54 Year
  Sex: Female

DRUGS (9)
  1. ABILIFY TABS 5 MG [Suspect]
     Indication: BIPOLAR DISORDER
     Route: 048
     Dates: start: 20130320, end: 20130401
  2. ATIVAN [Concomitant]
  3. ACCUPRIL [Concomitant]
  4. LOVASTATIN [Concomitant]
  5. HYDROXYZINE [Concomitant]
  6. ZOLOFT [Concomitant]
  7. INSULIN [Concomitant]
  8. METFORMIN [Concomitant]
  9. DEPAKOTE [Concomitant]

REACTIONS (5)
  - Restlessness [Recovered/Resolved]
  - Swollen tongue [Recovered/Resolved]
  - Dysphagia [Recovered/Resolved]
  - Local swelling [Recovered/Resolved]
  - Blood glucose increased [Recovered/Resolved]
